FAERS Safety Report 5468113-3 (Version None)
Quarter: 2007Q3

REPORT INFORMATION
  Report Type: 
  Country: None (occurrence: None)
  Receive Date: 20070921
  Receipt Date: 20070910
  Transmission Date: 20080115
  Serious: Yes (Other)
  Sender: FDA-Public Use
  Company Number: 2007AL003758

PATIENT
  Age: 83 Year
  Sex: Female

DRUGS (1)
  1. DIGOXIN [Suspect]
     Indication: ATRIAL FIBRILLATION
     Dosage: 1 MG; X1;

REACTIONS (6)
  - BRADYCARDIA [None]
  - CARDIOACTIVE DRUG LEVEL ABOVE THERAPEUTIC [None]
  - CREATININE RENAL CLEARANCE DECREASED [None]
  - DRUG TOXICITY [None]
  - NAUSEA [None]
  - VOMITING [None]
